FAERS Safety Report 6111802-8 (Version None)
Quarter: 2009Q1

REPORT INFORMATION
  Report Type: 
  Country: None (occurrence: None)
  Receive Date: 20090311
  Receipt Date: 20090305
  Transmission Date: 20090719
  Serious: Yes (Hospitalization)
  Sender: FDA-Public Use
  Company Number: JP-EISAI MEDICAL RESEARCH-E2090-00681-SPO-JP

PATIENT
  Sex: Female

DRUGS (5)
  1. EXCEGRAN [Suspect]
     Indication: EPILEPSY
     Route: 048
     Dates: start: 20090226, end: 20090227
  2. DEPAKENE [Concomitant]
     Route: 048
  3. RIZE [Concomitant]
     Route: 048
  4. TEGRETOL [Concomitant]
  5. TEGRETOL [Concomitant]

REACTIONS (1)
  - OCULOMUCOCUTANEOUS SYNDROME [None]
